FAERS Safety Report 8608915-5 (Version None)
Quarter: 2012Q3

REPORT INFORMATION
  Report Type: 
  Country: None (occurrence: None)
  Receive Date: 20120821
  Receipt Date: 20120806
  Transmission Date: 20120928
  Serious: Yes (Other)
  Sender: FDA-Public Use
  Company Number: US-WATSON-2012-14334

PATIENT

DRUGS (2)
  1. CARBOPLATIN [Suspect]
     Indication: RETINOBLASTOMA UNILATERAL
     Dosage: 30 MG, UNKNOWN
     Route: 013
  2. MELPHALAN HYDROCHLORIDE [Suspect]
     Indication: RETINOBLASTOMA UNILATERAL
     Dosage: 5 MG, UNKNOWN
     Route: 013

REACTIONS (2)
  - CHOROIDAL DYSTROPHY [None]
  - POOR PERIPHERAL CIRCULATION [None]
